FAERS Safety Report 5624772-3 (Version None)
Quarter: 2008Q1

REPORT INFORMATION
  Report Type: 
  Country: None (occurrence: None)
  Receive Date: 20080213
  Receipt Date: 20080205
  Transmission Date: 20080703
  Serious: Yes (Hospitalization)
  Sender: FDA-Public Use
  Company Number: US-TYCO HEALTHCARE/MALLINCKRODT-T200800142

PATIENT

DRUGS (21)
  1. LORTAB [Suspect]
     Dosage: UNK, UNK
  2. ACETAMINOPHEN AND HYDROCODONE BITARTRATE [Suspect]
  3. HYDROCODONE BITARTRATE + ACETAMINOPHEN [Suspect]
     Dosage: 2.5 UNK, UNK
  4. VARENICLINE [Suspect]
  5. RIVAROXABAN [Suspect]
  6. ACETYLSALICYLIC ACID SRT [Suspect]
  7. ANTITHROMBOTIC AGENTS [Suspect]
  8. BENADRYL [Suspect]
  9. PLAVIX [Suspect]
  10. FOLTX                              /01502401/ [Concomitant]
  11. ACETYLSALICYLIC ACID SRT [Concomitant]
  12. POTASSIUM CHLORIDE [Concomitant]
  13. CALCIUM W/MINERALS/VITAMIN D NOS [Concomitant]
  14. NITROGLYCERIN [Concomitant]
  15. ISOSORBIDE MONONITRATE [Concomitant]
  16. PAROXETINE HCL [Concomitant]
  17. NEXIUM [Concomitant]
  18. FLEXERIL [Concomitant]
  19. LISINOPRIL [Concomitant]
  20. TOPROL-XL [Concomitant]
  21. PRAVASTATIN [Concomitant]

REACTIONS (2)
  - DRUG INTERACTION [None]
  - MENTAL STATUS CHANGES [None]
